FAERS Safety Report 14684868 (Version 1)
Quarter: 2018Q1

REPORT INFORMATION
  Report Type: Report from Study
  Country: NL (occurrence: NL)
  Receive Date: 20180327
  Receipt Date: 20180327
  Transmission Date: 20180509
  Serious: Yes (Other)
  Sender: FDA-Public Use
  Company Number: NL-TEVA-2018-NL-872233

PATIENT

DRUGS (8)
  1. CISPLATIN. [Suspect]
     Active Substance: CISPLATIN
     Indication: HEAD AND NECK CANCER
     Dosage: RECEIVED TWO CYCLES OF A 3 HOUR INFUSION OF CISPLATIN 100 MG/M 2 IN ONE LITRE OF SALINE ON DAY 1 ...
     Route: 065
  2. DEXAMETHASONE. [Concomitant]
     Active Substance: DEXAMETHASONE
     Indication: PROPHYLAXIS OF NAUSEA AND VOMITING
     Route: 065
  3. APREPITANT. [Concomitant]
     Active Substance: APREPITANT
     Indication: PROPHYLAXIS OF NAUSEA AND VOMITING
     Route: 065
  4. SALINE [Concomitant]
     Active Substance: SODIUM CHLORIDE
     Dosage: CISPLATIN WAS ADMINISTERED IN 1 L OF SALINE AS A 3-HOUR INFUSION ON DAYS 1,AND 22
     Route: 050
  5. SALINE [Concomitant]
     Active Substance: SODIUM CHLORIDE
     Dosage: PREHYDRATION CONSISTED OF 1 L OF SALINE AND POSTHYDRATION OF 3 L OF SALINE IN 18 HOURS WITH POTAS...
     Route: 065
  6. POTASSIUM [Concomitant]
     Active Substance: POTASSIUM
     Dosage: POSTHYDRATION OF 3 L OF SALINE IN 18 HOURS WITH POTASSIUM AND MAGNESIUM CHLORIDE, 30 MMOL, AND 15...
     Route: 065
  7. ONDANSETRON [Concomitant]
     Active Substance: ONDANSETRON
     Indication: PROPHYLAXIS OF NAUSEA AND VOMITING
     Route: 065
  8. MAGNESIUM CHLORIDE. [Concomitant]
     Active Substance: MAGNESIUM CHLORIDE
     Dosage: POSTHYDRATION OF 3 L OF SALINE IN 18 HOURS WITH POTASSIUM AND MAGNESIUM CHLORIDE, 30 MMOL, AND 15...
     Route: 065

REACTIONS (1)
  - Renal impairment [Unknown]
